FAERS Safety Report 12368939 (Version 1)
Quarter: 2016Q2

REPORT INFORMATION
  Report Type: Spontaneous
  Country: US (occurrence: US)
  Receive Date: 20160513
  Receipt Date: 20160513
  Transmission Date: 20160815
  Serious: Yes (Other)
  Sender: FDA-Public Use
  Company Number: US-PFIZER INC-2016246353

PATIENT
  Age: 56 Year
  Sex: Female
  Weight: 76.19 kg

DRUGS (3)
  1. TRAMADOL. [Suspect]
     Active Substance: TRAMADOL
     Indication: PAIN
     Dosage: 50 MG, 2X/DAY
     Dates: start: 2014
  2. LYRICA [Suspect]
     Active Substance: PREGABALIN
     Indication: BONE PAIN
  3. LYRICA [Suspect]
     Active Substance: PREGABALIN
     Indication: ARTHRITIS
     Dosage: 75 MG, 2X/DAY
     Dates: start: 2012, end: 201512

REACTIONS (3)
  - Condition aggravated [Unknown]
  - Lower limb fracture [Unknown]
  - Pain [Unknown]

NARRATIVE: CASE EVENT DATE: 201503
